FAERS Safety Report 14203674 (Version 1)
Quarter: 2017Q4

REPORT INFORMATION
  Report Type: Spontaneous
  Country: US (occurrence: US)
  Receive Date: 20171120
  Receipt Date: 20171120
  Transmission Date: 20180321
  Serious: No
  Sender: FDA-Public Use
  Company Number: US-PFIZER INC-2017492126

PATIENT
  Sex: Male

DRUGS (1)
  1. LYRICA [Suspect]
     Active Substance: PREGABALIN
     Dosage: 25 MG, UNK (HAD THREE DOSES; TWO OR THREE PILLS INCLUDING ONE AT NIGHT)

REACTIONS (5)
  - Contusion [Unknown]
  - Nasal oedema [Unknown]
  - Nasopharyngitis [Unknown]
  - Eye contusion [Unknown]
  - Eye swelling [Unknown]
